FAERS Safety Report 6752883-8 (Version None)
Quarter: 2010Q2

REPORT INFORMATION
  Report Type: 
  Country: None (occurrence: None)
  Receive Date: 20100602
  Receipt Date: 20100602
  Transmission Date: 20101027
  Serious: Yes (Hospitalization)
  Sender: FDA-Public Use
  Company Number: None

PATIENT
  Age: 64 Year
  Sex: Female
  Weight: 113.3993 kg

DRUGS (1)
  1. TOPIRAMATE [Suspect]
     Indication: PAIN IN EXTREMITY
     Dosage: 1 PILL 3 TIMES A DAY UNK
     Dates: start: 20100420, end: 20100530

REACTIONS (4)
  - AMNESIA [None]
  - DECREASED APPETITE [None]
  - DIABETES MELLITUS [None]
  - DIZZINESS [None]
